FAERS Safety Report 8377346-8 (Version None)
Quarter: 2012Q2

REPORT INFORMATION
  Report Type: 
  Country: None (occurrence: None)
  Receive Date: 20120522
  Receipt Date: 20120520
  Transmission Date: 20120825
  Serious: Yes (Death)
  Sender: FDA-Public Use
  Company Number: IL-PFIZER INC-2012121952

PATIENT
  Sex: Female

DRUGS (1)
  1. XALKORI [Suspect]
     Indication: NON-SMALL CELL LUNG CANCER STAGE IV
     Dosage: 250 MG, 2X/DAY
     Route: 048

REACTIONS (1)
  - DEATH [None]
